FAERS Safety Report 4814838-X (Version None)
Quarter: 2005Q4

REPORT INFORMATION
  Report Type: 
  Country: None (occurrence: None)
  Receive Date: 20051028
  Receipt Date: 20051018
  Transmission Date: 20060501
  Serious: Yes (Other)
  Sender: FDA-Public Use
  Company Number: ES-GILEAD-2005-0008826

PATIENT
  Age: 48 Year
  Sex: Female
  Weight: 39 kg

DRUGS (4)
  1. VIREAD [Suspect]
     Indication: HIV INFECTION
  2. VIDEX [Suspect]
     Indication: HIV INFECTION
  3. K (POSSIBLY KALETRA) [Suspect]
     Indication: HIV INFECTION
  4. SEPTRA [Concomitant]
     Dates: start: 20050317

REACTIONS (2)
  - FANCONI SYNDROME [None]
  - METABOLIC ACIDOSIS [None]
